FAERS Safety Report 14172995 (Version 1)
Quarter: 2017Q4

REPORT INFORMATION
  Report Type: Spontaneous
  Country: US (occurrence: None)
  Receive Date: 20171108
  Receipt Date: 20171108
  Transmission Date: 20180321
  Serious: Yes (Hospitalization)
  Sender: FDA-Public Use
  Company Number: None

PATIENT
  Age: 51 Year
  Sex: Male

DRUGS (8)
  1. ENBREL [Suspect]
     Active Substance: ETANERCEPT
     Indication: RHEUMATOID ARTHRITIS
     Route: 058
     Dates: start: 20170509
  2. PRILOSEC [Concomitant]
     Active Substance: OMEPRAZOLE MAGNESIUM
  3. FOLIC ACID. [Concomitant]
     Active Substance: FOLIC ACID
  4. METAMUCIL [Concomitant]
     Active Substance: PLANTAGO SEED
  5. PERCOCET [Concomitant]
     Active Substance: ACETAMINOPHEN\OXYCODONE HYDROCHLORIDE
  6. IRON [Concomitant]
     Active Substance: IRON
  7. CIALIS [Concomitant]
     Active Substance: TADALAFIL
  8. VIAGRA [Concomitant]
     Active Substance: SILDENAFIL CITRATE

REACTIONS (1)
  - Knee arthroplasty [None]

NARRATIVE: CASE EVENT DATE: 201708
